FAERS Safety Report 17661808 (Version 1)
Quarter: 2020Q2

REPORT INFORMATION
  Report Type: Spontaneous
  Country: NL (occurrence: NL)
  Receive Date: 20200413
  Receipt Date: 20200413
  Transmission Date: 20200713
  Serious: Yes (Other)
  Sender: FDA-Public Use
  Company Number: NL-MYLANLABS-2020M1035752

PATIENT
  Age: 52 Year
  Sex: Male
  Weight: 76 kg

DRUGS (1)
  1. AZITROMYCINE MYLAN 200 MG/5 ML, POEDER VOOR ORALE SUSPENSIE [Suspect]
     Active Substance: AZITHROMYCIN
     Indication: ARTHROPOD BITE
     Dosage: 1 DOSAGE FORM, QD(1X PER DAY ONE BOTTLE)
     Route: 048

REACTIONS (5)
  - Abdominal discomfort [Recovered/Resolved]
  - Diarrhoea [Recovered/Resolved]
  - Haematochezia [Recovered/Resolved]
  - Vomiting [Recovered/Resolved]
  - Dysgeusia [Recovered/Resolved]
